FAERS Safety Report 6801118 (Version 2)
Quarter: 2018Q4

REPORT INFORMATION
  Report Type: Spontaneous
  Country: JP (occurrence: JP)
  Receive Date: 20081031
  Receipt Date: 20181101
  Transmission Date: 20190205
  Serious: Yes (Hospitalization)
  Sender: FDA-Public Use
  Company Number: PHBS2008JP06082

PATIENT
  Age: 55 Year
  Sex: Female

DRUGS (1)
  1. IMATINIB. [Suspect]
     Active Substance: IMATINIB MESYLATE
     Indication: CHRONIC MYELOID LEUKAEMIA
     Dosage: UNK
     Route: 065
     Dates: start: 20020204

REACTIONS (22)
  - Alpha 2 globulin increased [Recovered/Resolved]
  - C-reactive protein increased [Recovered/Resolved]
  - Blood fibrinogen increased [Recovered/Resolved]
  - Blood lactate dehydrogenase increased [Unknown]
  - Mycobacterial infection [Recovered/Resolved]
  - Neutropenia [Recovered/Resolved]
  - Acid fast bacilli infection [Recovered/Resolved]
  - Pneumonia [Recovered/Resolved]
  - Skin plaque [Recovered/Resolved]
  - Bone marrow disorder [Recovered/Resolved]
  - Chromosome analysis abnormal [Unknown]
  - Acute febrile neutrophilic dermatosis [Recovered/Resolved]
  - Skin mass [Recovered/Resolved]
  - Pyrexia [Recovered/Resolved]
  - Activated partial thromboplastin time prolonged [Unknown]
  - Bronchoalveolar lavage [Recovered/Resolved]
  - Device related sepsis [Recovered/Resolved]
  - Platelet count increased [Unknown]
  - Fatigue [Recovered/Resolved]
  - Pneumonia staphylococcal [Recovered/Resolved]
  - Leukopenia [Recovered/Resolved]
  - Fungal sepsis [Recovered/Resolved]

NARRATIVE: CASE EVENT DATE: 20060828
